FAERS Safety Report 12200871 (Version 2)
Quarter: 2016Q2

REPORT INFORMATION
  Report Type: Spontaneous
  Country: US (occurrence: US)
  Receive Date: 20160322
  Receipt Date: 20160413
  Transmission Date: 20160815
  Serious: No
  Sender: FDA-Public Use
  Company Number: US-PFIZER INC-2015326543

PATIENT
  Age: 56 Year
  Sex: Female
  Weight: 62.6 kg

DRUGS (9)
  1. ASA [Concomitant]
     Active Substance: ASPIRIN
     Dosage: 81 MG, 1X/DAY
  2. SERTRALINE [Concomitant]
     Active Substance: SERTRALINE HYDROCHLORIDE
     Indication: ANXIETY
     Dosage: 50 UNK, 1X/DAY (50MG ONE AND A HALF PER DAY)
  3. METFORMIN [Concomitant]
     Active Substance: METFORMIN HYDROCHLORIDE
     Indication: DIABETES MELLITUS
     Dosage: UNK, 2X/DAY
  4. MELOXICAM. [Concomitant]
     Active Substance: MELOXICAM
     Dosage: 7.5 MG, 1X/DAY
  5. MELOXICAM. [Concomitant]
     Active Substance: MELOXICAM
     Indication: ARTHRITIS
     Dosage: UNK, 2X/DAY
  6. XANAX [Concomitant]
     Active Substance: ALPRAZOLAM
     Dosage: UNK
  7. METFORMIN [Concomitant]
     Active Substance: METFORMIN HYDROCHLORIDE
     Dosage: 750 MG, UNK
  8. LISINOPRIL. [Concomitant]
     Active Substance: LISINOPRIL
     Indication: BLOOD PRESSURE ABNORMAL
     Dosage: 10 MG, 1X/DAY
  9. LYRICA [Suspect]
     Active Substance: PREGABALIN
     Indication: DIABETIC NEUROPATHY
     Dosage: 25 MG, 3X/DAY
     Route: 048
     Dates: start: 201510, end: 201601

REACTIONS (5)
  - Drug dose omission [Unknown]
  - Pain in extremity [Not Recovered/Not Resolved]
  - Dysstasia [Unknown]
  - Pain [Not Recovered/Not Resolved]
  - Impaired work ability [Unknown]

NARRATIVE: CASE EVENT DATE: 201601
